FAERS Safety Report 6925871-6 (Version None)
Quarter: 2010Q3

REPORT INFORMATION
  Report Type: 
  Country: None (occurrence: None)
  Receive Date: 20100816
  Receipt Date: 20100809
  Transmission Date: 20110219
  Serious: Yes (Other)
  Sender: FDA-Public Use
  Company Number: CA-B.I. PHARMACEUTICALS,INC./RIDGEFIELD-2010-DE-04359GD

PATIENT

DRUGS (1)
  1. AGGRENOX [Suspect]

REACTIONS (2)
  - NAUSEA [None]
  - RENAL FAILURE ACUTE [None]
